FAERS Safety Report 6651779-X (Version None)
Quarter: 2010Q1

REPORT INFORMATION
  Report Type: 
  Country: None (occurrence: None)
  Receive Date: 20100325
  Receipt Date: 20100323
  Transmission Date: 20100710
  Serious: Yes (Other)
  Sender: FDA-Public Use
  Company Number: GB-ROXANE LABORATORIES, INC.-2010-RO-00317RO

PATIENT
  Age: 67 Year
  Sex: Female

DRUGS (7)
  1. DEXAMETHASONE [Suspect]
     Indication: ANTIEMETIC SUPPORTIVE CARE
     Dosage: 8 MG
  2. FLUCONAZOLE [Suspect]
     Indication: ORAL CANDIDIASIS
     Route: 042
  3. MITOMYCIN C [Suspect]
     Indication: ANAL CANCER STAGE II
     Route: 042
  4. FLUOROURACIL [Suspect]
     Indication: ANAL CANCER STAGE II
  5. CEFUROXIME SODIUM [Suspect]
     Indication: ORAL CANDIDIASIS
     Route: 042
  6. COTRIM [Suspect]
     Indication: ANTIFUNGAL PROPHYLAXIS
  7. ACYCLOVIR [Suspect]
     Indication: ANTIVIRAL PROPHYLAXIS

REACTIONS (4)
  - LYMPHOPENIA [None]
  - ORAL CANDIDIASIS [None]
  - SKIN EXFOLIATION [None]
  - STRIDOR [None]
